FAERS Safety Report 5973844-2 (Version None)
Quarter: 2008Q4

REPORT INFORMATION
  Report Type: 
  Country: None (occurrence: None)
  Receive Date: 20081201
  Receipt Date: 20081121
  Transmission Date: 20090506
  Serious: Yes (Other)
  Sender: FDA-Public Use
  Company Number: BR-ABBOTT-08P-020-0478803-00

PATIENT
  Sex: Female

DRUGS (5)
  1. VALPAKINE [Suspect]
     Indication: CONVULSION
     Dosage: DOSAGE STRENGTH=8G/40ML
     Dates: start: 20070101
  2. VALPAKINE [Suspect]
     Route: 048
     Dates: start: 20080911, end: 20080914
  3. VALPAKINE [Suspect]
     Route: 048
     Dates: start: 20080914
  4. PHENOBARBITAL TAB [Concomitant]
     Indication: CONVULSION
     Route: 048
     Dates: start: 20061201, end: 20080914
  5. PHENOBARBITAL TAB [Concomitant]
     Route: 048
     Dates: start: 20080914

REACTIONS (3)
  - CONVULSION [None]
  - DRUG INEFFECTIVE [None]
  - THERAPEUTIC RESPONSE UNEXPECTED WITH DRUG SUBSTITUTION [None]
